FAERS Safety Report 16035056 (Version 1)
Quarter: 2019Q1

REPORT INFORMATION
  Report Type: Other
  Country: GR (occurrence: GR)
  Receive Date: 20190305
  Receipt Date: 20190305
  Transmission Date: 20190418
  Serious: Yes (Hospitalization, Other)
  Sender: FDA-Public Use
  Company Number: GR-APOTEX-2019AP008695

PATIENT
  Age: 37 Year
  Sex: Male

DRUGS (3)
  1. OLANZAPINE. [Suspect]
     Active Substance: OLANZAPINE
     Indication: DEPRESSION
     Dosage: UNK
     Route: 065
  2. CITALOPRAM [Suspect]
     Active Substance: CITALOPRAM HYDROBROMIDE
     Indication: DEPRESSION
     Dosage: UNK
     Route: 065
  3. CARBAMAZEPINE. [Suspect]
     Active Substance: CARBAMAZEPINE
     Indication: DEPRESSION
     Dosage: UNK
     Route: 065

REACTIONS (9)
  - Lymphadenopathy [Recovered/Resolved]
  - Product use in unapproved indication [Unknown]
  - Rash maculo-papular [Recovered/Resolved]
  - Stevens-Johnson syndrome [Recovered/Resolved]
  - Pyrexia [Recovered/Resolved]
  - Normochromic normocytic anaemia [Recovered/Resolved]
  - Hepatosplenomegaly [Recovered/Resolved]
  - Generalised oedema [Recovered/Resolved]
  - Malaise [Recovered/Resolved]
